FAERS Safety Report 11410917 (Version 2)
Quarter: 2015Q3

REPORT INFORMATION
  Report Type: Spontaneous
  Country: PH (occurrence: PH)
  Receive Date: 20150824
  Receipt Date: 20150825
  Transmission Date: 20151125
  Serious: Yes (Death, Hospitalization, Other)
  Sender: FDA-Public Use
  Company Number: PH-009507513-1508PHL008025

PATIENT
  Age: 64 Year
  Sex: Male

DRUGS (1)
  1. EZETROL [Suspect]
     Active Substance: EZETIMIBE
     Indication: BLOOD CHOLESTEROL INCREASED
     Dosage: 10 MG ONCE DAILY
     Route: 048
     Dates: start: 2014, end: 20150812

REACTIONS (2)
  - Blood pressure increased [Unknown]
  - Multi-organ failure [Fatal]

NARRATIVE: CASE EVENT DATE: 201508
